FAERS Safety Report 4411038-2 (Version None)
Quarter: 2004Q2

REPORT INFORMATION
  Report Type: 
  Country: None (occurrence: None)
  Receive Date: 20040630
  Receipt Date: 20040429
  Transmission Date: 20050107
  Serious: No
  Sender: FDA-Public Use
  Company Number: 04P-163-0259700-00

PATIENT
  Age: 62 Year
  Sex: Female
  Weight: 90.7194 kg

DRUGS (12)
  1. HUMIRA [Suspect]
     Indication: RHEUMATOID ARTHRITIS
     Dosage: 40 MG, 1 IN 2 WK, SUBCUTANEOUS
     Route: 058
     Dates: start: 20031101, end: 20040201
  2. ACETAMINOPHEN W/ CODEINE [Concomitant]
  3. LITHIUM CARBONATE [Concomitant]
  4. METHOTREXATE [Concomitant]
  5. FOLIC ACID [Concomitant]
  6. LEVOTHYROXINE SODIUM [Concomitant]
  7. OMEPRAZOLE [Concomitant]
  8. OLANZAPINE [Concomitant]
  9. PAROXETINE HYDROCHLORIDE [Concomitant]
  10. GABAPENTIN [Concomitant]
  11. SULINDAC [Concomitant]
  12. TRAZODONE [Concomitant]

REACTIONS (4)
  - COUGH [None]
  - DYSPNOEA [None]
  - HERPES ZOSTER [None]
  - LUNG INFILTRATION [None]
